FAERS Safety Report 7065442-7 (Version None)
Quarter: 2010Q4

REPORT INFORMATION
  Report Type: 
  Country: None (occurrence: None)
  Receive Date: 20101027
  Receipt Date: 20101015
  Transmission Date: 20110411
  Serious: Yes (Other)
  Sender: FDA-Public Use
  Company Number: BR-PFIZER INC-2010119404

PATIENT
  Age: 63 Year
  Sex: Female
  Weight: 90 kg

DRUGS (7)
  1. LYRICA [Suspect]
     Indication: POLYNEUROPATHY
     Dosage: 150 MG, 1X/DAY
     Route: 048
     Dates: start: 20100101, end: 20100915
  2. LYRICA [Suspect]
     Dosage: 150 MG, 3X/DAY
     Route: 048
     Dates: start: 20100101, end: 20100101
  3. PURAN T4 [Concomitant]
     Indication: HYPOTHYROIDISM
     Dosage: 150 MG, UNK
     Dates: start: 19680101
  4. AMITRIPTYLINE [Concomitant]
     Indication: DEPRESSION
     Dosage: UNK, 1X/DAILY
     Dates: start: 20060101
  5. LEGALON [Concomitant]
     Indication: HEPATIC STEATOSIS
     Dosage: UNK, 1X/DAILY
     Dates: start: 20070101
  6. CAPTOPRIL [Concomitant]
     Indication: HYPERTENSION
     Dosage: 25 MG, 3X/DAY, EVERY 8 HOURS
  7. PROPRANOLOL [Concomitant]
     Indication: HYPERTENSION
     Dosage: 40 MG, 2X/DAY, EVERY 12 HOURS

REACTIONS (3)
  - PAIN [None]
  - PROTHROMBIN TIME SHORTENED [None]
  - THROMBOCYTOPENIA [None]
